FAERS Safety Report 8965626 (Version 1)
Quarter: 2012Q4

REPORT INFORMATION
  Report Type: Spontaneous
  Country: US (occurrence: None)
  Receive Date: 20121212
  Receipt Date: 20121212
  Transmission Date: 20130627
  Serious: Yes (Other)
  Sender: FDA-Public Use
  Company Number: None

PATIENT
  Sex: Male
  Weight: 68.04 kg

DRUGS (1)
  1. DEXTROAMPHETAMINE/SULFATE 10 MG ACTAVIS [Suspect]
     Indication: ATTENTION DEFICIT DISORDER
     Dosage: 10 mg 1 daily po
     Route: 048
     Dates: start: 20121017, end: 20121210

REACTIONS (2)
  - Product substitution issue [None]
  - Product quality issue [None]
